FAERS Safety Report 7383629-0 (Version None)
Quarter: 2011Q1

REPORT INFORMATION
  Report Type: 
  Country: None (occurrence: None)
  Receive Date: 20110330
  Receipt Date: 20110318
  Transmission Date: 20110831
  Serious: Yes (Other)
  Sender: FDA-Public Use
  Company Number: US-JNJFOC-20110308341

PATIENT
  Age: 29 Year
  Sex: Female

DRUGS (2)
  1. NICOTINE [Suspect]
     Indication: PRODUCT USED FOR UNKNOWN INDICATION
     Route: 062
  2. NICOTINE [Suspect]
     Route: 062

REACTIONS (5)
  - URTICARIA [None]
  - DISORIENTATION [None]
  - NAUSEA [None]
  - VOMITING [None]
  - TACHYCARDIA [None]
